FAERS Safety Report 20357275 (Version 1)
Quarter: 2022Q1

REPORT INFORMATION
  Report Type: Other
  Country: US (occurrence: None)
  Receive Date: 20220120
  Receipt Date: 20220120
  Transmission Date: 20220423
  Serious: No
  Sender: FDA-Public Use
  Company Number: US-ROCHE-3000995

PATIENT
  Sex: Female

DRUGS (2)
  1. OCREVUS [Suspect]
     Active Substance: OCRELIZUMAB
     Indication: Product used for unknown indication
     Dosage: INFUSE 300MG INTRAVENOUSLY ON DAY(S) 1 AND DAY(S) 15 THEN INFUSE 600MG EVERY 6 MONTH(S)
     Route: 042
  2. PFIZER VACCINE (UNK INGREDIENTS) [Concomitant]

REACTIONS (1)
  - COVID-19 [Recovered/Resolved]
